FAERS Safety Report 18253000 (Version 1)
Quarter: 2020Q3

REPORT INFORMATION
  Report Type: Spontaneous
  Country: ES (occurrence: ES)
  Receive Date: 20200910
  Receipt Date: 20200910
  Transmission Date: 20201103
  Serious: Yes (Other)
  Sender: FDA-Public Use
  Company Number: ES-BAYER-2019-178400

PATIENT
  Age: 9 Year
  Sex: Female
  Weight: 56.22 kg

DRUGS (1)
  1. CLARITINE 10 MG [Suspect]
     Active Substance: LORATADINE
     Indication: ALLERGY TO ARTHROPOD STING
     Dosage: 10 MG, QD
     Route: 048
     Dates: start: 20190821, end: 20190822

REACTIONS (3)
  - Nausea [Recovered/Resolved]
  - Tachycardia [Recovered/Resolved]
  - Malaise [Recovered/Resolved]

NARRATIVE: CASE EVENT DATE: 20190821
